FAERS Safety Report 6996966-6 (Version None)
Quarter: 2010Q3

REPORT INFORMATION
  Report Type: 
  Country: None (occurrence: None)
  Receive Date: 20100918
  Receipt Date: 20090915
  Transmission Date: 20110219
  Serious: No
  Sender: FDA-Public Use
  Company Number: US-WYE-H10678409

PATIENT
  Age: 23 Year
  Sex: Female

DRUGS (2)
  1. PRISTIQ [Suspect]
     Indication: POST-TRAUMATIC STRESS DISORDER
     Dosage: 50 MG EVERY 1 TOT
     Route: 048
     Dates: start: 20090812, end: 20090812
  2. PRISTIQ [Suspect]
     Indication: ANXIETY

REACTIONS (9)
  - ANXIETY [None]
  - COLD SWEAT [None]
  - CONDITION AGGRAVATED [None]
  - DIZZINESS [None]
  - HYPERTONIA [None]
  - NERVOUSNESS [None]
  - PALPITATIONS [None]
  - PARAESTHESIA [None]
  - TREMOR [None]
